FAERS Safety Report 4359633-3 (Version None)
Quarter: 2004Q2

REPORT INFORMATION
  Report Type: 
  Country: None (occurrence: None)
  Receive Date: 20040512
  Receipt Date: 20040423
  Transmission Date: 20050107
  Serious: Yes (Hospitalization, Other)
  Sender: FDA-Public Use
  Company Number: DE_040413330

PATIENT
  Age: 52 Year
  Weight: 68 kg

DRUGS (16)
  1. ALIMTA [Suspect]
     Indication: PLEURAL MESOTHELIOMA
     Dosage: 910  MG
     Dates: start: 20030923, end: 20040210
  2. CARBOPLATIN [Suspect]
     Indication: PLEURAL MESOTHELIOMA
     Dates: start: 20030101, end: 20040210
  3. CARBOPLATIN [Suspect]
     Indication: PLEURAL MESOTHELIOMA
     Dates: start: 20030101, end: 20031223
  4. LAFOL (FOLIC ACID) [Concomitant]
  5. DEXAMETHASONE [Concomitant]
  6. VITAMIN B-12 [Concomitant]
  7. LOPIRIN (CAPTOPRIL) [Concomitant]
  8. NOVAN (PROCHLORPERAZINE) [Concomitant]
  9. DUROGESIC 9FENTANYL) [Concomitant]
  10. FLUOXETINE [Concomitant]
  11. MORAL (NYSTATIN) [Concomitant]
  12. TAVEGIL (CLEMASTINE) [Concomitant]
  13. SEVEREDOL (MORPHINE SULFATE) [Concomitant]
  14. NEURONTIN [Concomitant]
  15. NOCTAMIDE (LORMETAZEPAM) [Concomitant]
  16. AUGMENTIN '125' [Concomitant]

REACTIONS (10)
  - ALVEOLITIS [None]
  - ANXIETY [None]
  - BRONCHITIS ACUTE [None]
  - DEPRESSION [None]
  - DYSPNOEA [None]
  - EXANTHEM [None]
  - HAEMOPTYSIS [None]
  - ORAL CANDIDIASIS [None]
  - PANIC DISORDER [None]
  - PNEUMONIA PRIMARY ATYPICAL [None]
